FAERS Safety Report 5264901-7 (Version None)
Quarter: 2007Q1

REPORT INFORMATION
  Report Type: 
  Country: None (occurrence: None)
  Receive Date: 20061117
  Receipt Date: 20060725
  Transmission Date: 20070707
  Serious: Yes (Other)
  Sender: FDA-Public Use
  Company Number: US-JNJFOC-20060705043

PATIENT
  Age: 44 Year
  Sex: Female
  Weight: 58.9676 kg

DRUGS (2)
  1. LEVAQUIN [Suspect]
     Indication: BRONCHITIS
     Dosage: 500 MG, 1 IN 1 DAY, ORAL
     Route: 048
     Dates: start: 20060703, end: 20060708
  2. CYMBALTA [Concomitant]

REACTIONS (6)
  - HYPERSENSITIVITY [None]
  - JOINT SWELLING [None]
  - MOOD ALTERED [None]
  - OCULAR ICTERUS [None]
  - PERIPHERAL COLDNESS [None]
  - PYREXIA [None]
